FAERS Safety Report 9721371 (Version 1)
Quarter: 2013Q4

REPORT INFORMATION
  Report Type: Spontaneous
  Country: US (occurrence: US)
  Receive Date: 20131129
  Receipt Date: 20131129
  Transmission Date: 20140711
  Serious: No
  Sender: FDA-Public Use
  Company Number: US-PFIZER INC-2013337670

PATIENT
  Age: 67 Year
  Sex: Male
  Weight: 80.27 kg

DRUGS (4)
  1. TIKOSYN [Suspect]
     Indication: VENTRICULAR TACHYCARDIA
     Dosage: 500 UG, 2X/DAY
     Dates: start: 201207
  2. TIKOSYN [Suspect]
     Indication: VENTRICULAR EXTRASYSTOLES
  3. METOPROLOL [Concomitant]
     Indication: ARRHYTHMIA
     Dosage: 50 MG, 1X/DAY
  4. PLAVIX [Concomitant]
     Indication: ARTERIOSCLEROSIS
     Dosage: 75 MG, 1X/DAY

REACTIONS (6)
  - Nasopharyngitis [Unknown]
  - Oropharyngeal pain [Unknown]
  - Sneezing [Unknown]
  - Cough [Unknown]
  - Increased upper airway secretion [Unknown]
  - Bone pain [Unknown]
